FAERS Safety Report 18878562 (Version 2)
Quarter: 2021Q1

REPORT INFORMATION
  Report Type: Spontaneous
  Country: CA (occurrence: CA)
  Receive Date: 20210211
  Receipt Date: 20210303
  Transmission Date: 20210420
  Serious: Yes (Other)
  Sender: FDA-Public Use
  Company Number: CA-GLAXOSMITHKLINE-CA2021AMR015200

PATIENT
  Age: 78 Year
  Sex: Female

DRUGS (3)
  1. ZEJULA [Suspect]
     Active Substance: NIRAPARIB
     Indication: OVARIAN EPITHELIAL CANCER
     Dosage: 200 MG, QD
     Route: 048
     Dates: start: 20201228, end: 20210118
  2. ZEJULA [Suspect]
     Active Substance: NIRAPARIB
     Indication: MALIGNANT PERITONEAL NEOPLASM
  3. ZEJULA [Suspect]
     Active Substance: NIRAPARIB
     Indication: FALLOPIAN TUBE CANCER
     Dosage: 100 MG, QD
     Route: 048

REACTIONS (8)
  - Normochromic normocytic anaemia [Unknown]
  - Full blood count abnormal [Not Recovered/Not Resolved]
  - Paraesthesia [Unknown]
  - Platelet count decreased [Recovering/Resolving]
  - Toxicity to various agents [Unknown]
  - Pancytopenia [Unknown]
  - Thrombocytopenia [Unknown]
  - Rouleaux formation [Unknown]

NARRATIVE: CASE EVENT DATE: 20210114
